FAERS Safety Report 11397243 (Version 1)
Quarter: 2015Q3

REPORT INFORMATION
  Report Type: Report from Study
  Country: US (occurrence: US)
  Receive Date: 20150819
  Receipt Date: 20150819
  Transmission Date: 20151125
  Serious: No
  Sender: FDA-Public Use
  Company Number: PHEH2014US005076

PATIENT
  Age: 37 Year
  Sex: Female
  Weight: 91.6 kg

DRUGS (6)
  1. GILENYA [Suspect]
     Active Substance: FINGOLIMOD HYDROCHLORIDE
     Indication: MULTIPLE SCLEROSIS
     Dosage: 0.5 MG, QD
     Route: 048
     Dates: start: 20140311
  2. REQUIP [Concomitant]
     Active Substance: ROPINIROLE HYDROCHLORIDE
     Dosage: 1.5 MG, QD
     Route: 065
  3. FLUOXETINE HCL [Concomitant]
     Active Substance: FLUOXETINE HYDROCHLORIDE
     Indication: PRODUCT USED FOR UNKNOWN INDICATION
     Route: 065
  4. BACLOFEN. [Concomitant]
     Active Substance: BACLOFEN
     Dosage: 30 MG, QD
     Route: 065
  5. REQUIP [Concomitant]
     Active Substance: ROPINIROLE HYDROCHLORIDE
     Indication: RESTLESS LEGS SYNDROME
     Dosage: 1 MG, UNK
     Route: 065
  6. BACLOFEN. [Concomitant]
     Active Substance: BACLOFEN
     Indication: RESTLESS LEGS SYNDROME
     Dosage: 20 MG, QD
     Route: 065

REACTIONS (22)
  - Somnolence [Unknown]
  - Sensory loss [Unknown]
  - Back pain [Recovering/Resolving]
  - Sleep apnoea syndrome [Unknown]
  - Hypoaesthesia [Unknown]
  - Abdominal tenderness [Unknown]
  - Migraine [Unknown]
  - Headache [Recovering/Resolving]
  - Platelet count decreased [Unknown]
  - Weight decreased [Unknown]
  - Liver function test abnormal [Unknown]
  - Abdominal pain [Recovering/Resolving]
  - Nausea [Unknown]
  - Balance disorder [Unknown]
  - Snoring [Unknown]
  - Abdominal discomfort [Unknown]
  - Muscle spasms [Recovering/Resolving]
  - Depression [Recovering/Resolving]
  - Fatigue [Recovering/Resolving]
  - Asthenia [Unknown]
  - Sleep disorder [Recovering/Resolving]
  - Grip strength decreased [Unknown]

NARRATIVE: CASE EVENT DATE: 20140311
